FAERS Safety Report 14407274 (Version 1)
Quarter: 2018Q1

REPORT INFORMATION
  Report Type: Spontaneous
  Country: CZ (occurrence: CZ)
  Receive Date: 20180118
  Receipt Date: 20180118
  Transmission Date: 20180509
  Serious: Yes (Life-Threatening, Other)
  Sender: FDA-Public Use
  Company Number: CZ-PFIZER INC-2018021480

PATIENT
  Age: 63 Year
  Sex: Female

DRUGS (8)
  1. RINGERFUNDIN [Concomitant]
     Dosage: UNK
  2. NOLPAZA [Concomitant]
     Active Substance: PANTOPRAZOLE SODIUM
     Dosage: UNK
  3. PLASMALYTE [Concomitant]
     Active Substance: ELECTROLYTES NOS
     Dosage: UNK
  4. KALNORMIN [Concomitant]
     Active Substance: POTASSIUM CHLORIDE
     Dosage: UNK
  5. ECALTA [Suspect]
     Active Substance: ANIDULAFUNGIN
     Indication: FUNGAL SEPSIS
     Dosage: 100 MG, UNK
     Route: 042
     Dates: start: 20171207, end: 20171207
  6. NOVALGIN (METAMIZOLE SODIUM) [Concomitant]
     Active Substance: METAMIZOLE SODIUM
     Dosage: UNK
  7. TYGACIL [Concomitant]
     Active Substance: TIGECYCLINE
     Dosage: UNK
  8. FRAXIPARIN [Concomitant]
     Active Substance: NADROPARIN CALCIUM
     Dosage: UNK

REACTIONS (7)
  - Feeling hot [Recovered/Resolved]
  - Hyperhidrosis [Recovered/Resolved]
  - Oxygen saturation decreased [Recovered/Resolved]
  - Hypotension [Recovered/Resolved]
  - Pruritus [Recovered/Resolved]
  - Circulatory collapse [Recovered/Resolved]
  - Tachycardia [Recovered/Resolved]

NARRATIVE: CASE EVENT DATE: 20171207
